FAERS Safety Report 8811396 (Version 3)
Quarter: 2013Q1

REPORT INFORMATION
  Report Type: Spontaneous
  Country: US (occurrence: US)
  Receive Date: 20120927
  Receipt Date: 20130206
  Transmission Date: 20140127
  Serious: Yes (Other)
  Sender: FDA-Public Use
  Company Number: US-BAYER-2012-100844

PATIENT
  Age: 22 Year
  Sex: Female
  Weight: 122 kg

DRUGS (1)
  1. MIRENA [Suspect]
     Indication: CONTRACEPTION
     Dosage: 20 MCG/24HR, CONT
     Route: 015
     Dates: start: 20120913, end: 20120920

REACTIONS (6)
  - Device dislocation [None]
  - Genital haemorrhage [Recovering/Resolving]
  - Pain [None]
  - Pelvic pain [Recovering/Resolving]
  - Back pain [Recovering/Resolving]
  - Therapeutic product ineffective [None]
